FAERS Safety Report 15954129 (Version 1)
Quarter: 2019Q1

REPORT INFORMATION
  Report Type: Report from Study
  Country: US (occurrence: US)
  Receive Date: 20190212
  Receipt Date: 20190212
  Transmission Date: 20190417
  Serious: Yes (Other)
  Sender: FDA-Public Use
  Company Number: US-ACTELION-A-US2019-185927

PATIENT
  Age: 63 Year
  Sex: Female

DRUGS (2)
  1. OPSUMIT [Suspect]
     Active Substance: MACITENTAN
     Indication: PULMONARY ARTERIAL HYPERTENSION
     Dosage: 10 MG, QD
     Route: 048
     Dates: start: 20160205
  2. OPSUMIT [Suspect]
     Active Substance: MACITENTAN
     Dosage: 10MG, QOD
     Route: 048

REACTIONS (5)
  - Dyspnoea [Unknown]
  - Shock [Unknown]
  - Arthritis [Unknown]
  - Pain [Unknown]
  - Inappropriate schedule of product administration [Unknown]
